FAERS Safety Report 9812775 (Version 1)
Quarter: 2014Q1

REPORT INFORMATION
  Report Type: Spontaneous
  Country: US (occurrence: US)
  Receive Date: 20140113
  Receipt Date: 20140113
  Transmission Date: 20141002
  Serious: Yes (Other)
  Sender: FDA-Public Use
  Company Number: US-MYLANLABS-2014S1000254

PATIENT
  Age: 17 Year
  Sex: Female
  Weight: 38.7 kg

DRUGS (4)
  1. FUROSEMIDE [Suspect]
     Route: 065
  2. TACROLIMUS [Suspect]
     Route: 065
  3. TOBRAMYCIN [Suspect]
     Route: 065
  4. HEPARIN [Suspect]
     Indication: ANTICOAGULANT THERAPY
     Route: 065

REACTIONS (1)
  - Renal failure acute [Recovered/Resolved]
